FAERS Safety Report 9605177 (Version 6)
Quarter: 2014Q3

REPORT INFORMATION
  Report Type: Report from Study
  Country: US (occurrence: US)
  Receive Date: 20131008
  Receipt Date: 20140923
  Transmission Date: 20150326
  Serious: Yes (Life-Threatening, Hospitalization, Other)
  Sender: FDA-Public Use
  Company Number: US-GLAXOSMITHKLINE-A1043983A

PATIENT
  Sex: Female

DRUGS (16)
  1. VITAMIN C [Concomitant]
     Active Substance: ASCORBIC ACID
  2. PEPCID [Concomitant]
     Active Substance: FAMOTIDINE
  3. LABETALOL [Concomitant]
     Active Substance: LABETALOL\LABETALOL HYDROCHLORIDE
  4. BENLYSTA [Suspect]
     Active Substance: BELIMUMAB
     Indication: SYSTEMIC LUPUS ERYTHEMATOSUS
     Dosage: 616MG MONTHLY
     Route: 042
     Dates: start: 20120612
  5. PLAQUENIL [Concomitant]
     Active Substance: HYDROXYCHLOROQUINE SULFATE
     Dosage: 200MG TWICE PER DAY
  6. NON STEROIDAL ANTI-INFLAMMATORY DRUGS [Concomitant]
     Active Substance: UNSPECIFIED INGREDIENT
  7. ASPIRIN. [Concomitant]
     Active Substance: ASPIRIN
  8. ANTI MALARIALS [Concomitant]
     Dates: start: 20051205
  9. MYCOPHENOLATE [Concomitant]
     Active Substance: MYCOPHENOLIC ACID
     Dates: start: 20110804, end: 20120706
  10. FLECAINIDE [Concomitant]
     Active Substance: FLECAINIDE
     Dosage: 100MG THREE TIMES PER DAY
  11. PREDNISONE. [Concomitant]
     Active Substance: PREDNISONE
     Indication: SYSTEMIC LUPUS ERYTHEMATOSUS
     Route: 048
     Dates: start: 20110505
  12. NIFEDIPINE. [Concomitant]
     Active Substance: NIFEDIPINE
  13. IRON [Concomitant]
     Active Substance: IRON
  14. PRENATAL VITAMIN [Concomitant]
     Active Substance: VITAMINS
  15. BABY ASPIRIN [Concomitant]
     Active Substance: ASPIRIN
     Dates: start: 20051205
  16. FOLIC ACID. [Concomitant]
     Active Substance: FOLIC ACID

REACTIONS (4)
  - Breast feeding [Unknown]
  - Pre-eclampsia [Recovered/Resolved]
  - Exposure during pregnancy [Unknown]
  - Live birth [Unknown]

NARRATIVE: CASE EVENT DATE: 20130819
